FAERS Safety Report 19608828 (Version 2)
Quarter: 2021Q3

REPORT INFORMATION
  Report Type: Report from Study
  Country: US (occurrence: US)
  Receive Date: 20210726
  Receipt Date: 20210824
  Transmission Date: 20211014
  Serious: Yes (Hospitalization, Disabling, Other)
  Sender: FDA-Public Use
  Company Number: US-SA-2021SA232227

PATIENT
  Age: 51 Year
  Sex: Female
  Weight: 99.8 kg

DRUGS (13)
  1. VITAMIN D [VITAMIN D NOS] [Concomitant]
     Active Substance: VITAMIN D NOS
     Dosage: 2000 U, QD
     Route: 048
  2. ULTRAM [Concomitant]
     Active Substance: TRAMADOL HYDROCHLORIDE
     Indication: PAIN
     Dosage: 1 DF, Q6H (AS NEEDED)
     Route: 048
  3. DULCOLAX (BISACODYL) [Concomitant]
     Active Substance: BISACODYL
     Indication: CONSTIPATION
     Dosage: 1 DF, QD (AS NEEDED)
     Route: 054
  4. ROXICODONE [Concomitant]
     Active Substance: OXYCODONE HYDROCHLORIDE
     Indication: PAIN
     Dosage: 1 DF, Q6H (AS NEEDED)
     Route: 048
  5. TERIFLUNOMIDE. [Suspect]
     Active Substance: TERIFLUNOMIDE
     Indication: MULTIPLE SCLEROSIS
     Dosage: 14 MG, QD
     Route: 048
     Dates: start: 20170628, end: 2021
  6. XARELTO [Concomitant]
     Active Substance: RIVAROXABAN
     Indication: THROMBOSIS PROPHYLAXIS
     Dosage: 1 DF, QD
     Route: 048
  7. NEURONTIN [Concomitant]
     Active Substance: GABAPENTIN
     Indication: NEURITIS
     Dosage: 1 DF, BID
     Route: 048
  8. VITAMIN D [VITAMIN D NOS] [Concomitant]
     Active Substance: VITAMIN D NOS
     Dosage: 1 DF, QW (STRENGTH: 50,000 UNITS)
     Route: 048
  9. VITAMIN D3 [Concomitant]
     Active Substance: CHOLECALCIFEROL
     Dosage: 50000 U, QW (EVERY MONDAY)
     Route: 048
  10. FERROUS SULFATE. [Concomitant]
     Active Substance: FERROUS SULFATE
     Dosage: 1 DF, BID (65 MG IRON), DELAYED RELEASE
     Route: 048
  11. VESICARE [Concomitant]
     Active Substance: SOLIFENACIN SUCCINATE
     Dosage: 1 DF, QD
     Route: 048
  12. PREMARIN [Concomitant]
     Active Substance: ESTROGENS, CONJUGATED
     Dosage: 0.625 MG, QD
     Route: 048
  13. FLUCELVAX QUADRIVALENT [Concomitant]
     Dosage: SYRINGE (60 MCG (15MCGX4)/0.5 ML)
     Route: 030
     Dates: start: 2019, end: 2020

REACTIONS (43)
  - Fall [Unknown]
  - Osteoarthritis [Unknown]
  - Red cell distribution width increased [Unknown]
  - Scar [Unknown]
  - Hemiparesis [Unknown]
  - Fall [Unknown]
  - Joint dislocation [Unknown]
  - Arthralgia [Recovering/Resolving]
  - JC polyomavirus test positive [Unknown]
  - Hyperreflexia [Unknown]
  - Osteosclerosis [Unknown]
  - Pain in extremity [Unknown]
  - C-reactive protein increased [Unknown]
  - Pineal gland cyst [Unknown]
  - Spinal osteoarthritis [Unknown]
  - Joint swelling [Unknown]
  - Exostosis [Unknown]
  - Mean cell haemoglobin concentration decreased [Unknown]
  - Eosinophil count increased [Unknown]
  - Gait disturbance [Unknown]
  - Multiple sclerosis [Unknown]
  - Lower limb fracture [Not Recovered/Not Resolved]
  - Vitamin D deficiency [Unknown]
  - Oedema peripheral [Unknown]
  - Joint range of motion decreased [Unknown]
  - Peripheral swelling [Unknown]
  - Product dose omission issue [Unknown]
  - Hypertonia [Unknown]
  - Joint dislocation [Unknown]
  - Monocyte count increased [Unknown]
  - Essential hypertension [Unknown]
  - Pain [Not Recovered/Not Resolved]
  - Paraparesis [Unknown]
  - Ataxia [Unknown]
  - Sepsis [Unknown]
  - Joint effusion [Unknown]
  - Joint injury [Unknown]
  - Soft tissue swelling [Unknown]
  - Blood pressure increased [Unknown]
  - Neurogenic bladder [Unknown]
  - Muscle injury [Not Recovered/Not Resolved]
  - Balance disorder [Unknown]
  - Skin abrasion [Unknown]

NARRATIVE: CASE EVENT DATE: 20190814
